FAERS Safety Report 4398109-4 (Version None)
Quarter: 2004Q3

REPORT INFORMATION
  Report Type: 
  Country: None (occurrence: None)
  Receive Date: 20040713
  Receipt Date: 20040605
  Transmission Date: 20050211
  Serious: Yes (Life-Threatening, Hospitalization)
  Sender: FDA-Public Use
  Company Number: 2004GB01633

PATIENT
  Age: 90 Year
  Sex: Female

DRUGS (5)
  1. ATENOLOL [Suspect]
     Indication: GLAUCOMA
     Dosage: 25 MG QAM PO
     Route: 048
     Dates: start: 20040329, end: 20040406
  2. TIMOLOL MALEATE [Suspect]
     Indication: HYPERTENSION
     Dosage: BD BOTH EYES
     Dates: start: 20040329, end: 20040406
  3. BENDROFLUAZIDE [Concomitant]
  4. ACETAMINOPHEN [Concomitant]
  5. MANEVAC [Concomitant]

REACTIONS (3)
  - ATRIOVENTRICULAR BLOCK [None]
  - BRADYCARDIA [None]
  - THROMBOSIS [None]
